FAERS Safety Report 7014814-5 (Version None)
Quarter: 2010Q3

REPORT INFORMATION
  Report Type: 
  Country: None (occurrence: None)
  Receive Date: 20100927
  Receipt Date: 20100729
  Transmission Date: 20110219
  Serious: Yes (Hospitalization, Other)
  Sender: FDA-Public Use
  Company Number: DE-BAYER-201032130GPV

PATIENT
  Age: 53 Year
  Sex: Female

DRUGS (3)
  1. NEXAVAR [Suspect]
     Indication: RENAL CELL CARCINOMA
     Dosage: UNIT DOSE: 200 MG
     Route: 048
     Dates: start: 20100401, end: 20100430
  2. SUTENT [Suspect]
     Dates: end: 20100330
  3. AMLODIPINE [Concomitant]
     Indication: PULMONARY HYPERTENSION
     Dosage: 1 DAY
     Route: 048
     Dates: end: 20100330

REACTIONS (2)
  - HYPOTHYROIDISM [None]
  - THYROIDITIS [None]
